FAERS Safety Report 7771560-8 (Version None)
Quarter: 2011Q3

REPORT INFORMATION
  Report Type: 
  Country: None (occurrence: None)
  Receive Date: 20110922
  Receipt Date: 20110413
  Transmission Date: 20111222
  Serious: No
  Sender: FDA-Public Use
  Company Number: US-ASTRAZENECA-2009SE15226

PATIENT
  Age: 34 Year
  Sex: Female

DRUGS (18)
  1. SEROQUEL [Suspect]
     Indication: ANXIETY
     Route: 048
     Dates: start: 20000101, end: 20090601
  2. SEROQUEL [Suspect]
     Dosage: 50 MG-600 MG DAILY AT NIGHT
     Route: 048
     Dates: start: 20040913
  3. SEROQUEL [Suspect]
     Dosage: 50 MG-600 MG DAILY AT NIGHT
     Route: 048
     Dates: start: 20040913
  4. DESYREL [Concomitant]
     Dates: start: 20040913
  5. ZYPREXA [Concomitant]
     Indication: BIPOLAR DISORDER
  6. MEDROL [Concomitant]
     Dates: start: 20090402
  7. SEROQUEL [Suspect]
     Indication: SLEEP DISORDER
     Route: 048
     Dates: start: 20000101, end: 20090601
  8. SEROQUEL [Suspect]
     Dosage: 50 MG-600 MG DAILY AT NIGHT
     Route: 048
     Dates: start: 20040913
  9. PROZAC [Concomitant]
     Dosage: 40 MG-60 MG DAILY
     Dates: start: 20040913
  10. DOLOBID [Concomitant]
     Indication: PAIN
     Dates: start: 20090402
  11. SEROQUEL [Suspect]
     Dosage: 50 MG-600 MG DAILY AT NIGHT
     Route: 048
     Dates: start: 20040913
  12. XANAX [Concomitant]
     Dates: start: 20060914, end: 20090402
  13. AMBIEN [Concomitant]
     Indication: INSOMNIA
     Dates: start: 20090402
  14. ABILIFY [Concomitant]
  15. TEGRETOL-XR [Concomitant]
     Dosage: 600 MG DAILY
     Dates: start: 20060710
  16. SEROQUEL [Suspect]
     Indication: BIPOLAR DISORDER
     Route: 048
     Dates: start: 20000101, end: 20090601
  17. SEROQUEL [Suspect]
     Indication: INSOMNIA
     Route: 048
     Dates: start: 20000101, end: 20090601
  18. CLONOPIN [Concomitant]

REACTIONS (6)
  - BLOOD CHOLESTEROL INCREASED [None]
  - TYPE 2 DIABETES MELLITUS [None]
  - WEIGHT INCREASED [None]
  - OBESITY [None]
  - HYPERLIPIDAEMIA [None]
  - BLOOD TRIGLYCERIDES INCREASED [None]
